FAERS Safety Report 9126096 (Version 1)
Quarter: 2013Q1

REPORT INFORMATION
  Report Type: Spontaneous
  Country: US (occurrence: US)
  Receive Date: 20130121
  Receipt Date: 20130121
  Transmission Date: 20140127
  Serious: No
  Sender: FDA-Public Use
  Company Number: US-MYLANLABS-2012S1000898

PATIENT
  Age: 80 Year
  Sex: Male

DRUGS (3)
  1. LORAZEPAM [Suspect]
     Indication: ANXIETY
     Route: 048
     Dates: end: 201012
  2. LORAZEPAM [Suspect]
     Indication: ANXIETY
     Route: 048
     Dates: start: 201101
  3. FINASTERIDE [Suspect]
     Indication: BENIGN PROSTATIC HYPERPLASIA
     Route: 048
     Dates: start: 201108, end: 20111214

REACTIONS (1)
  - Constipation [Not Recovered/Not Resolved]
